FAERS Safety Report 6680933-6 (Version None)
Quarter: 2010Q2

REPORT INFORMATION
  Report Type: 
  Country: None (occurrence: None)
  Receive Date: 20100414
  Receipt Date: 20100409
  Transmission Date: 20101027
  Serious: Yes (Other)
  Sender: FDA-Public Use
  Company Number: US-JNJFOC-20080106388

PATIENT
  Sex: Female
  Weight: 79.38 kg

DRUGS (2)
  1. LEVAQUIN [Suspect]
     Indication: PNEUMONIA PRIMARY ATYPICAL
     Route: 048
  2. ESTRATEST [Concomitant]
     Indication: HORMONE REPLACEMENT THERAPY
     Route: 048

REACTIONS (8)
  - AMNESIA [None]
  - ARTHRITIS [None]
  - CONFUSIONAL STATE [None]
  - COORDINATION ABNORMAL [None]
  - PARAESTHESIA [None]
  - PNEUMONIA [None]
  - TREMOR [None]
  - VISION BLURRED [None]
